FAERS Safety Report 21189680 (Version 1)
Quarter: 2022Q3

REPORT INFORMATION
  Report Type: Other
  Country: US (occurrence: None)
  Receive Date: 20220809
  Receipt Date: 20220809
  Transmission Date: 20221027
  Serious: Yes (Other)
  Sender: FDA-Public Use
  Company Number: US-ROCHE-3151254

PATIENT
  Sex: Male

DRUGS (2)
  1. VENCLEXTA [Suspect]
     Active Substance: VENETOCLAX
     Indication: Chronic lymphocytic leukaemia
     Route: 048
     Dates: start: 20190823
  2. RITUXAN [Suspect]
     Active Substance: RITUXIMAB
     Indication: Chronic lymphocytic leukaemia
     Dosage: 4 CYCLES COMPLETED IN MAY 9, 2017
     Route: 065
     Dates: start: 20190823

REACTIONS (3)
  - Neuropathy peripheral [Unknown]
  - Lymphadenopathy [Unknown]
  - Disease progression [Unknown]
